FAERS Safety Report 7089193-8 (Version None)
Quarter: 2010Q4

REPORT INFORMATION
  Report Type: 
  Country: None (occurrence: None)
  Receive Date: 20101029
  Receipt Date: 20101019
  Transmission Date: 20110411
  Serious: Yes (Hospitalization, Other)
  Sender: FDA-Public Use
  Company Number: 2010P1002007

PATIENT
  Age: 73 Year
  Sex: Female

DRUGS (10)
  1. METFORMIN (NO PREF. NAME) [Suspect]
     Indication: TYPE 2 DIABETES MELLITUS
     Dosage: 850 MG;TID;PO
     Route: 048
  2. ADENOCOUMAROL [Concomitant]
  3. BISOPROLOL FUMARATE [Concomitant]
  4. TORASEMIDE [Concomitant]
  5. DIGOXIN [Concomitant]
  6. ESCITALOPRAM [Concomitant]
  7. LORMETAZEPAM [Concomitant]
  8. TERBUTALINE SULFATE [Concomitant]
  9. TIOTROPIUM BROMIDE [Concomitant]
  10. INSULIN GLARGINE [Concomitant]

REACTIONS (23)
  - ABDOMINAL PAIN UPPER [None]
  - ACTIVATED PARTIAL THROMBOPLASTIN TIME PROLONGED [None]
  - ANAEMIA [None]
  - ASTHENIA [None]
  - BLOOD BILIRUBIN INCREASED [None]
  - BLOOD GLUCOSE INCREASED [None]
  - BLOOD SODIUM DECREASED [None]
  - CARDIAC FAILURE [None]
  - DECREASED APPETITE [None]
  - DEHYDRATION [None]
  - DYSPNOEA [None]
  - GENERAL PHYSICAL HEALTH DETERIORATION [None]
  - HEPATIC FAILURE [None]
  - HEPATOTOXICITY [None]
  - INTERNATIONAL NORMALISED RATIO INCREASED [None]
  - LACTIC ACIDOSIS [None]
  - LEUKOCYTOSIS [None]
  - NEUTROPHILIA [None]
  - POLYDIPSIA [None]
  - POLYURIA [None]
  - RENAL FAILURE [None]
  - THROMBOCYTOPENIA [None]
  - VOMITING [None]
